FAERS Safety Report 6596675-1 (Version None)
Quarter: 2010Q1

REPORT INFORMATION
  Report Type: 
  Country: None (occurrence: None)
  Receive Date: 20100223
  Receipt Date: 20100217
  Transmission Date: 20100710
  Serious: Yes (Other)
  Sender: FDA-Public Use
  Company Number: JP-BAYER-201010827BYL

PATIENT
  Age: 75 Year
  Sex: Female

DRUGS (5)
  1. NEXAVAR [Suspect]
     Indication: RENAL CELL CARCINOMA
     Dosage: UNIT DOSE: 200 MG
     Route: 048
     Dates: start: 20090618, end: 20090723
  2. MEVALOTIN [Concomitant]
     Route: 048
     Dates: start: 20090625
  3. RIVOTRIL [Concomitant]
     Route: 048
     Dates: start: 20090625
  4. METHYCOBAL [Concomitant]
     Route: 048
     Dates: start: 20090625
  5. URSO 250 [Concomitant]
     Route: 048
     Dates: start: 20090625

REACTIONS (2)
  - HEPATIC FUNCTION ABNORMAL [None]
  - HYPERTENSION [None]
